FAERS Safety Report 17466834 (Version 1)
Quarter: 2020Q1

REPORT INFORMATION
  Report Type: Spontaneous
  Country: US (occurrence: US)
  Receive Date: 20200225
  Receipt Date: 20200225
  Transmission Date: 20200409
  Serious: No
  Sender: FDA-Public Use
  Company Number: None

PATIENT
  Age: 67 Year
  Sex: Male
  Weight: 55.34 kg

DRUGS (1)
  1. HEPARIN (HEPARIN NA 1000UNIT/ML INJ) [Suspect]
     Active Substance: HEPARIN SODIUM
     Indication: DEEP VEIN THROMBOSIS
     Dates: start: 20190801, end: 20190801

REACTIONS (3)
  - Livedo reticularis [None]
  - Heparin-induced thrombocytopenia [None]
  - Venous thrombosis limb [None]

NARRATIVE: CASE EVENT DATE: 20190805
